FAERS Safety Report 9743255 (Version 2)
Quarter: 2014Q2

REPORT INFORMATION
  Report Type: Report from Study
  Country: GB (occurrence: GB)
  Receive Date: 20131210
  Receipt Date: 20140528
  Transmission Date: 20141212
  Serious: Yes (Hospitalization)
  Sender: FDA-Public Use
  Company Number: GB-GLAXOSMITHKLINE-B0917177C

PATIENT
  Age: 62 Year
  Sex: Female

DRUGS (5)
  1. OFATUMUMAB [Suspect]
     Indication: RICHTER^S SYNDROME
     Dosage: 1000MGM2 THREE TIMES PER WEEK
     Route: 042
     Dates: start: 20130807, end: 20140219
  2. CYCLOPHOSPHAMIDE [Suspect]
     Indication: RICHTER^S SYNDROME
     Dosage: 750MGM2 THREE TIMES PER WEEK
     Route: 042
     Dates: start: 20130808
  3. VINCRISTINE [Suspect]
     Indication: RICHTER^S SYNDROME
     Dosage: 1.4MGM2 THREE TIMES PER WEEK
     Route: 042
     Dates: start: 20130808
  4. DOXORUBICIN [Suspect]
     Indication: RICHTER^S SYNDROME
     Dosage: 50MGM2 THREE TIMES PER WEEK
     Route: 040
     Dates: start: 20130808
  5. PREDNISOLONE [Suspect]
     Indication: RICHTER^S SYNDROME
     Dosage: 60MG THREE TIMES PER WEEK
     Route: 048
     Dates: start: 20130808

REACTIONS (1)
  - Neutropenic sepsis [Recovered/Resolved]
